FAERS Safety Report 8811315 (Version 2)
Quarter: 2012Q4

REPORT INFORMATION
  Report Type: 
  Country: US (occurrence: US)
  Receive Date: 20120927
  Receipt Date: 20121128
  Transmission Date: 20130627
  Serious: Yes (Hospitalization, Other)
  Sender: FDA-Public Use
  Company Number: US-ELI_LILLY_AND_COMPANY-US201209004516

PATIENT
  Age: 64 Year
  Sex: Female

DRUGS (3)
  1. PROZAC [Suspect]
  2. FLUOXETINE [Concomitant]
     Indication: MOTOR NEURONE DISEASE
  3. AMANTADINE [Concomitant]

REACTIONS (5)
  - Intracranial aneurysm [Unknown]
  - Influenza like illness [Not Recovered/Not Resolved]
  - Rhinorrhoea [Unknown]
  - Vomiting [Unknown]
  - Off label use [Not Recovered/Not Resolved]
